FAERS Safety Report 8940422 (Version 2)
Quarter: 2012Q4

REPORT INFORMATION
  Report Type: 
  Country: US (occurrence: US)
  Receive Date: 20121130
  Receipt Date: 20121226
  Transmission Date: 20130627
  Serious: Yes (Hospitalization)
  Sender: FDA-Public Use
  Company Number: US-PFIZER INC-2012273570

PATIENT
  Age: 81 Year
  Sex: Male
  Weight: 71.5 kg

DRUGS (11)
  1. ACETAMINOPHEN [Concomitant]
     Indication: PAIN
     Dosage: 325 mg, 1 Tab by mouth every 6 hours as needed
     Route: 048
     Dates: start: 201108
  2. ACYCLOVIR [Concomitant]
     Dosage: 400 mg, 5X per day
     Route: 048
     Dates: start: 20121102
  3. ALPRAZOLAM [Concomitant]
     Dosage: 0.5 mg, take 1 Tab 3x/day
     Route: 048
     Dates: start: 201108
  4. ENALAPRIL [Concomitant]
     Dosage: 20 mg, daily
     Route: 048
  5. MEGESTROL ACETATE [Concomitant]
     Dosage: 40 mg/ml, suspension take 10 mL mouth daily
     Route: 048
     Dates: start: 201209
  6. PANTOPRAZOLE [Concomitant]
     Dosage: 40 mg, take 1 tab by mouth 2x/day
     Route: 048
     Dates: start: 201208
  7. ZANTAC [Concomitant]
     Dosage: 150 mg, daily
     Route: 048
     Dates: start: 201206
  8. SIMVASTATIN [Concomitant]
     Dosage: 20 mg, by mouth at bed time
     Route: 048
  9. TEMSIROLIMUS [Suspect]
     Indication: HODGKIN^S DISEASE
     Dosage: 20 mg, weekly intravenous drip
     Route: 042
     Dates: start: 20120712, end: 20121025
  10. PREDNISONE [Suspect]
     Indication: EOSINOPHILIA
     Dosage: 10 mg, take 1 tab by mouth daily
     Route: 048
     Dates: start: 201207
  11. PREDNISONE [Suspect]
     Indication: SKIN RASH

REACTIONS (1)
  - Pneumocystis jiroveci pneumonia [Recovered/Resolved]
